FAERS Safety Report 21735699 (Version 1)
Quarter: 2022Q4

REPORT INFORMATION
  Report Type: Spontaneous
  Country: NZ (occurrence: NZ)
  Receive Date: 20221215
  Receipt Date: 20221215
  Transmission Date: 20230112
  Serious: Yes (Death)
  Sender: FDA-Public Use
  Company Number: NZ-TEVA-2022-NZ-2834057

PATIENT
  Age: 62 Year
  Sex: Male

DRUGS (1)
  1. QUINAPRIL [Suspect]
     Active Substance: QUINAPRIL
     Indication: Blood pressure abnormal
     Dosage: 20 MILLIGRAM DAILY;
     Route: 065
     Dates: start: 201905

REACTIONS (2)
  - Adverse drug reaction [Fatal]
  - Swelling face [Fatal]

NARRATIVE: CASE EVENT DATE: 20220101
